FAERS Safety Report 11314943 (Version 1)
Quarter: 2015Q3

REPORT INFORMATION
  Report Type: Spontaneous
  Country: US (occurrence: US)
  Receive Date: 20150727
  Receipt Date: 20150727
  Transmission Date: 20151125
  Serious: No
  Sender: FDA-Public Use
  Company Number: US-SHIRE-US201508920

PATIENT
  Sex: Male

DRUGS (1)
  1. INTUNIV [Suspect]
     Active Substance: GUANFACINE HYDROCHLORIDE
     Indication: DISTURBANCE IN ATTENTION
     Dosage: UNK, UNKNOWN
     Route: 048
     Dates: start: 2013, end: 2014

REACTIONS (2)
  - Pruritus generalised [Not Recovered/Not Resolved]
  - Tongue pruritus [Not Recovered/Not Resolved]

NARRATIVE: CASE EVENT DATE: 2013
